FAERS Safety Report 24332760 (Version 1)
Quarter: 2024Q3

REPORT INFORMATION
  Report Type: Spontaneous
  Country: CN (occurrence: CN)
  Receive Date: 20240918
  Receipt Date: 20240918
  Transmission Date: 20241017
  Serious: Yes (Life-Threatening)
  Sender: PFIZER
  Company Number: CN-PFIZER INC-PV202400120791

PATIENT
  Age: 75 Year
  Sex: Female

DRUGS (6)
  1. PACLITAXEL [Suspect]
     Active Substance: PACLITAXEL
     Indication: Neoplasm
     Dosage: 210 MG, 1X/DAY
     Route: 041
     Dates: start: 20240829, end: 20240829
  2. PACLITAXEL [Suspect]
     Active Substance: PACLITAXEL
     Indication: Oesophageal carcinoma
  3. SINTILIMAB [Suspect]
     Active Substance: SINTILIMAB
     Indication: Neoplasm
     Dosage: 200 MG, 1X/DAY
     Route: 041
     Dates: start: 20240829, end: 20240829
  4. SINTILIMAB [Suspect]
     Active Substance: SINTILIMAB
     Indication: Oesophageal carcinoma
  5. NEDAPLATIN [Suspect]
     Active Substance: NEDAPLATIN
     Indication: Neoplasm
     Dosage: 40 MG, 1X/DAY (D1-3)
     Route: 041
     Dates: start: 20240829, end: 20240831
  6. NEDAPLATIN [Suspect]
     Active Substance: NEDAPLATIN
     Indication: Oesophageal carcinoma

REACTIONS (4)
  - White blood cell count decreased [Recovered/Resolved]
  - Granulocyte count decreased [Recovered/Resolved]
  - Myelosuppression [Recovered/Resolved]
  - Off label use [Unknown]

NARRATIVE: CASE EVENT DATE: 20240829
